FAERS Safety Report 23402500 (Version 1)
Quarter: 2024Q1

REPORT INFORMATION
  Report Type: Spontaneous
  Country: SK (occurrence: SK)
  Receive Date: 20240115
  Receipt Date: 20240115
  Transmission Date: 20240410
  Serious: Yes (Hospitalization, Other)
  Sender: FDA-Public Use
  Company Number: None

PATIENT
  Age: 82 Year
  Sex: Female

DRUGS (1)
  1. PRALUENT [Suspect]
     Active Substance: ALIROCUMAB
     Indication: Lipid metabolism disorder
     Dosage: 150 MG, QOW
     Route: 058
     Dates: start: 20180919, end: 20230418

REACTIONS (1)
  - Urticarial vasculitis [Recovered/Resolved]
